FAERS Safety Report 7870271-8 (Version None)
Quarter: 2011Q4

REPORT INFORMATION
  Report Type: 
  Country: None (occurrence: None)
  Receive Date: 20111028
  Receipt Date: 20110117
  Transmission Date: 20120403
  Serious: No
  Sender: FDA-Public Use
  Company Number: US-AMGEN-USASP2011002752

PATIENT
  Sex: Male

DRUGS (3)
  1. AZULFIDINE [Concomitant]
  2. PLAQUENIL [Concomitant]
  3. ENBREL [Suspect]
     Indication: RHEUMATOID ARTHRITIS
     Dates: start: 20071213

REACTIONS (1)
  - RHEUMATOID ARTHRITIS [None]
